FAERS Safety Report 9737169 (Version 1)
Quarter: 2013Q4

REPORT INFORMATION
  Report Type: Other
  Country: AU (occurrence: AU)
  Receive Date: 20131206
  Receipt Date: 20131206
  Transmission Date: 20140711
  Serious: Yes (Hospitalization, Other)
  Sender: FDA-Public Use
  Company Number: AU-BRISTOL-MYERS SQUIBB COMPANY-19874437

PATIENT
  Age: 56 Year
  Sex: Female

DRUGS (3)
  1. WARFARIN SODIUM [Suspect]
     Indication: PULMONARY EMBOLISM
  2. RETEPLASE [Suspect]
     Indication: PULMONARY EMBOLISM
  3. HEPARIN [Suspect]
     Indication: PULMONARY EMBOLISM

REACTIONS (2)
  - Periorbital haematoma [Recovering/Resolving]
  - Blindness [Not Recovered/Not Resolved]
